FAERS Safety Report 7684457-9 (Version None)
Quarter: 2011Q3

REPORT INFORMATION
  Report Type: 
  Country: None (occurrence: None)
  Receive Date: 20110816
  Receipt Date: 20110804
  Transmission Date: 20111222
  Serious: No
  Sender: FDA-Public Use
  Company Number: US-BIOGENIDEC-2011BI020164

PATIENT
  Age: 41 Year
  Sex: Female

DRUGS (1)
  1. TYSABRI [Suspect]
     Indication: MULTIPLE SCLEROSIS
     Route: 042
     Dates: start: 20110331

REACTIONS (11)
  - INFLUENZA LIKE ILLNESS [None]
  - FATIGUE [None]
  - SOMNOLENCE [None]
  - FLUID RETENTION [None]
  - DEPRESSION [None]
  - HYPERHIDROSIS [None]
  - OEDEMA PERIPHERAL [None]
  - SWELLING FACE [None]
  - ABDOMINAL DISTENSION [None]
  - PAIN [None]
  - HEADACHE [None]
